FAERS Safety Report 9926260 (Version 1)
Quarter: 2014Q1

REPORT INFORMATION
  Report Type: Spontaneous
  Country: US (occurrence: US)
  Receive Date: 20140226
  Receipt Date: 20140226
  Transmission Date: 20141002
  Serious: No
  Sender: FDA-Public Use
  Company Number: US-AMGEN-USASP2013077325

PATIENT
  Age: 62 Year
  Sex: Female

DRUGS (1)
  1. ENBREL [Suspect]
     Indication: RHEUMATOID ARTHRITIS
     Dosage: UNK, WEEKLY
     Route: 065
     Dates: start: 201308, end: 201309

REACTIONS (9)
  - Bladder spasm [Recovered/Resolved]
  - Oedema peripheral [Not Recovered/Not Resolved]
  - Mobility decreased [Not Recovered/Not Resolved]
  - Nodule [Not Recovered/Not Resolved]
  - Finger deformity [Not Recovered/Not Resolved]
  - Bacterial infection [Recovered/Resolved]
  - Injection site warmth [Recovered/Resolved]
  - Injection site rash [Recovered/Resolved]
  - Injection site erythema [Recovered/Resolved]
